FAERS Safety Report 17211436 (Version 1)
Quarter: 2019Q4

REPORT INFORMATION
  Report Type: Spontaneous
  Country: GB (occurrence: GB)
  Receive Date: 20191229
  Receipt Date: 20191229
  Transmission Date: 20200122
  Serious: Yes (Other)
  Sender: FDA-Public Use
  Company Number: GB-DEXPHARM-20191206

PATIENT
  Age: 89 Year
  Sex: Male
  Weight: 69 kg

DRUGS (9)
  1. DOXAZOSIN [Concomitant]
     Active Substance: DOXAZOSIN MESYLATE
     Dates: start: 20190802
  2. OMEPRAZOLE. [Suspect]
     Active Substance: OMEPRAZOLE
     Indication: PRODUCT USED FOR UNKNOWN INDICATION
     Dates: start: 20191121
  3. GAVISCON ADVANCE [Concomitant]
     Active Substance: POTASSIUM BICARBONATE\SODIUM ALGINATE
     Dates: start: 20190802
  4. ZEMTARD MR [Concomitant]
     Dates: start: 20190802
  5. IRBESARTAN. [Concomitant]
     Active Substance: IRBESARTAN
     Dates: start: 20190802
  6. LANSOPRAZOLE. [Concomitant]
     Active Substance: LANSOPRAZOLE
     Dates: start: 20191126
  7. INVITA D3 [Concomitant]
     Dates: start: 20180521, end: 20190923
  8. RANITIDINE. [Concomitant]
     Active Substance: RANITIDINE
     Dates: start: 20190802, end: 20191121
  9. PARACETAMOL [Concomitant]
     Active Substance: ACETAMINOPHEN
     Dates: start: 20190802

REACTIONS (1)
  - Pyrexia [Recovered/Resolved]

NARRATIVE: CASE EVENT DATE: 20191205
